FAERS Safety Report 21703059 (Version 1)
Quarter: 2022Q4

REPORT INFORMATION
  Report Type: Report from Study
  Country: CA (occurrence: CA)
  Receive Date: 20221209
  Receipt Date: 20221209
  Transmission Date: 20230112
  Serious: Yes (Other)
  Sender: FDA-Public Use
  Company Number: CA-CELLTRION INC.-2022CA020439

PATIENT

DRUGS (1)
  1. TRUXIMA [Suspect]
     Active Substance: RITUXIMAB-ABBS
     Indication: Mantle cell lymphoma refractory
     Dosage: 800 MG, WEEKLY (INSTRUCTIONS: FOUR DOSE, DAYS 1, 8, 15 AND 22 FOR MONTH 1. SUBSEQUENTLY ON WEEK 13,
     Route: 042

REACTIONS (2)
  - Mantle cell lymphoma refractory [Unknown]
  - Off label use [Unknown]
